FAERS Safety Report 11133353 (Version 2)
Quarter: 2015Q2

REPORT INFORMATION
  Report Type: Report from Study
  Country: GB (occurrence: GB)
  Receive Date: 20150522
  Receipt Date: 20150526
  Transmission Date: 20150821
  Serious: Yes (Hospitalization)
  Sender: FDA-Public Use
  Company Number: GB-ABBVIE-15K-167-1392686-00

PATIENT
  Age: 46 Year
  Sex: Female
  Weight: 58 kg

DRUGS (4)
  1. NORETHISTERONE [Concomitant]
     Active Substance: NORETHINDRONE
     Indication: PRODUCT USED FOR UNKNOWN INDICATION
     Dates: start: 20131227
  2. MIRENA [Concomitant]
     Active Substance: LEVONORGESTREL
     Indication: PRODUCT USED FOR UNKNOWN INDICATION
  3. TRANEXAMIC ACID. [Concomitant]
     Active Substance: TRANEXAMIC ACID
     Indication: PRODUCT USED FOR UNKNOWN INDICATION
     Dates: start: 20140205
  4. HUMIRA [Suspect]
     Active Substance: ADALIMUMAB
     Indication: PSORIASIS
     Route: 058
     Dates: start: 20130802, end: 20141201

REACTIONS (14)
  - Dyspnoea exertional [Recovered/Resolved with Sequelae]
  - Hepatic steatosis [Unknown]
  - Decreased appetite [Recovered/Resolved with Sequelae]
  - Cough [Recovered/Resolved with Sequelae]
  - Chromaturia [Recovered/Resolved with Sequelae]
  - Oesophageal candidiasis [Unknown]
  - Jaundice [Recovered/Resolved with Sequelae]
  - Weight decreased [Recovered/Resolved with Sequelae]
  - Biliary sepsis [Recovered/Resolved with Sequelae]
  - Liver function test abnormal [Unknown]
  - Hepatitis alcoholic [Unknown]
  - Hepatomegaly [Unknown]
  - Gallbladder oedema [Unknown]
  - Gallbladder disorder [Unknown]

NARRATIVE: CASE EVENT DATE: 20150225
